FAERS Safety Report 6414828-X (Version None)
Quarter: 2009Q4

REPORT INFORMATION
  Report Type: 
  Country: None (occurrence: None)
  Receive Date: 20091026
  Receipt Date: 20091026
  Transmission Date: 20100525
  Serious: Yes (Hospitalization, Disabling)
  Sender: FDA-Public Use
  Company Number: None

PATIENT
  Age: 38 Year
  Sex: Male
  Weight: 75.5 kg

DRUGS (8)
  1. DEPAKOTE [Suspect]
     Indication: AFFECTIVE DISORDER
     Dosage: 500 MG BID PO
     Route: 048
  2. DEPAKOTE [Suspect]
     Indication: AUTISM
     Dosage: 500 MG BID PO
     Route: 048
  3. CLOIPRAMINE [Concomitant]
  4. GEMFIBROZIL [Concomitant]
  5. RISPERDAL [Concomitant]
  6. DEPAKOTE [Concomitant]
  7. LORATADINE [Concomitant]
  8. GARLIC [Concomitant]

REACTIONS (9)
  - AMMONIA INCREASED [None]
  - BODY TEMPERATURE INCREASED [None]
  - DEHYDRATION [None]
  - DEPRESSED LEVEL OF CONSCIOUSNESS [None]
  - HEART RATE INCREASED [None]
  - INFLUENZA [None]
  - RESPIRATORY RATE INCREASED [None]
  - RHABDOMYOLYSIS [None]
  - UNRESPONSIVE TO STIMULI [None]
